FAERS Safety Report 24154204 (Version 1)
Quarter: 2024Q3

REPORT INFORMATION
  Report Type: Spontaneous
  Country: FR (occurrence: FR)
  Receive Date: 20240730
  Receipt Date: 20240730
  Transmission Date: 20241016
  Serious: Yes (Other)
  Sender: SANDOZ
  Company Number: FR-PFIZER INC-PV202400082029

PATIENT
  Age: 52 Year
  Sex: Female

DRUGS (8)
  1. ETANERCEPT [Suspect]
     Active Substance: ETANERCEPT
     Indication: Rheumatoid arthritis
     Dosage: 50 MG, WEEKLY
     Route: 065
  2. FILGOTINIB [Suspect]
     Active Substance: FILGOTINIB
     Indication: Rheumatoid arthritis
     Dosage: 200 MG, DAILY
     Route: 065
  3. FILGOTINIB [Suspect]
     Active Substance: FILGOTINIB
     Indication: Rheumatoid arthritis
     Dosage: 200 MILLIGRAM, QD
     Route: 065
  4. METHOTREXATE [Suspect]
     Active Substance: METHOTREXATE
     Indication: Rheumatoid arthritis
     Dosage: 20 MG, QW
     Route: 065
  5. PREDNISONE [Suspect]
     Active Substance: PREDNISONE
     Dosage: 5 MG
     Route: 065
  6. PREDNISONE [Suspect]
     Active Substance: PREDNISONE
     Indication: Rheumatoid arthritis
     Dosage: UNK
     Route: 065
  7. FILGOTINIB [Concomitant]
     Active Substance: FILGOTINIB
     Dosage: 15 MG, QD
     Route: 065
  8. FILGOTINIB [Concomitant]
     Active Substance: FILGOTINIB
     Indication: Rheumatoid arthritis
     Dosage: 200 MG, QD
     Route: 065

REACTIONS (6)
  - Infection [Recovered/Resolved]
  - Infection [Recovering/Resolving]
  - Hodgkin^s disease [Recovered/Resolved]
  - Bacterial infection [Recovering/Resolving]
  - Whipple^s disease [Recovered/Resolved]
  - Drug ineffective [Unknown]
